FAERS Safety Report 25067460 (Version 1)
Quarter: 2025Q1

REPORT INFORMATION
  Report Type: Report from Study
  Country: PL (occurrence: PL)
  Receive Date: 20250312
  Receipt Date: 20250312
  Transmission Date: 20250409
  Serious: Yes (Other)
  Sender: AUROBINDO
  Company Number: PL-AUROBINDO-AUR-APL-2025-012582

PATIENT

DRUGS (2)
  1. MELPHALAN [Suspect]
     Active Substance: MELPHALAN
     Indication: Retinoblastoma
  2. MELPHALAN [Suspect]
     Active Substance: MELPHALAN
     Route: 057

REACTIONS (2)
  - Iridocyclitis [Unknown]
  - Overdose [Unknown]
